FAERS Safety Report 4479445-X (Version None)
Quarter: 2004Q4

REPORT INFORMATION
  Report Type: 
  Country: None (occurrence: None)
  Receive Date: 20041020
  Receipt Date: 20020102
  Transmission Date: 20050328
  Serious: Yes (Death, Life-Threatening, Hospitalization, Other)
  Sender: FDA-Public Use
  Company Number: 200210054US

PATIENT
  Age: 85 Year
  Sex: Female

DRUGS (3)
  1. AMARYL [Suspect]
     Dosage: DOSE: UNK
     Dates: start: 20011001
  2. REMINYL [Suspect]
     Route: 048
  3. ARICEPT [Concomitant]
     Dates: end: 20011001

REACTIONS (5)
  - COMA [None]
  - CSF NEUTROPHIL COUNT INCREASED [None]
  - LETHARGY [None]
  - MEDICATION ERROR [None]
  - THERAPY NON-RESPONDER [None]
